FAERS Safety Report 13391791 (Version 1)
Quarter: 2017Q1

REPORT INFORMATION
  Report Type: Spontaneous
  Country: JP (occurrence: JP)
  Receive Date: 20170331
  Receipt Date: 20170331
  Transmission Date: 20170429
  Serious: Yes (Other)
  Sender: FDA-Public Use
  Company Number: JP-ASTRAZENECA-2017SE32641

PATIENT
  Sex: Male

DRUGS (2)
  1. SYMBICORT [Suspect]
     Active Substance: BUDESONIDE\FORMOTEROL FUMARATE DIHYDRATE
     Indication: PRODUCTIVE COUGH
     Dosage: 2 DF MORNINGS AND EVENINGS
     Route: 055
  2. SYMBICORT [Suspect]
     Active Substance: BUDESONIDE\FORMOTEROL FUMARATE DIHYDRATE
     Indication: PRODUCTIVE COUGH
     Dosage: 1 DF MORNINGS AND EVENINGS
     Route: 055

REACTIONS (3)
  - Off label use [Unknown]
  - Lung neoplasm malignant [Unknown]
  - Product use issue [Unknown]
